FAERS Safety Report 25919640 (Version 2)
Quarter: 2025Q4

REPORT INFORMATION
  Report Type: Spontaneous
  Country: ID (occurrence: ID)
  Receive Date: 20251014
  Receipt Date: 20251020
  Transmission Date: 20260118
  Serious: Yes (Other)
  Sender: PFIZER
  Company Number: ID-MLMSERVICE-20251003-PI664974-00128-1

PATIENT
  Age: 31 Year
  Sex: Female

DRUGS (5)
  1. VINCRISTINE SULFATE [Suspect]
     Active Substance: VINCRISTINE SULFATE
     Indication: Non-Hodgkin^s lymphoma
     Dosage: UNK, EVERY 3 WEEKS (4 CYCLES)
     Dates: start: 2025, end: 20250424
  2. RITUXIMAB [Suspect]
     Active Substance: RITUXIMAB
     Indication: Non-Hodgkin^s lymphoma
     Dosage: UNK, EVERY 3 WEEKS (4 CYCLES)
     Dates: start: 2025, end: 20250424
  3. CYCLOPHOSPHAMIDE [Suspect]
     Active Substance: CYCLOPHOSPHAMIDE
     Indication: Non-Hodgkin^s lymphoma
     Dosage: UNK, EVERY 3 WEEKS (4 CYCLES)
     Dates: start: 2025, end: 20250424
  4. DOXORUBICIN HYDROCHLORIDE [Suspect]
     Active Substance: DOXORUBICIN HYDROCHLORIDE
     Indication: Non-Hodgkin^s lymphoma
     Dosage: UNK, EVERY 3 WEEKS (4 CYCLES)
     Dates: start: 2025, end: 20250424
  5. PREDNISONE [Suspect]
     Active Substance: PREDNISONE
     Indication: Non-Hodgkin^s lymphoma
     Dosage: UNK, EVERY 3 WEEKS (4 CYCLES)
     Dates: start: 2025, end: 20250424

REACTIONS (2)
  - Behcet^s syndrome [Unknown]
  - Bacterial infection [Unknown]

NARRATIVE: CASE EVENT DATE: 20250101
